FAERS Safety Report 9978154 (Version 2)
Quarter: 2014Q2

REPORT INFORMATION
  Report Type: Report from Study
  Country: TR (occurrence: TR)
  Receive Date: 20140306
  Receipt Date: 20140403
  Transmission Date: 20141212
  Serious: Yes (Hospitalization)
  Sender: FDA-Public Use
  Company Number: TR-ABBVIE-14P-161-1208856-00

PATIENT
  Age: 46 Year
  Sex: Female
  Weight: 77 kg

DRUGS (2)
  1. HUMIRA [Suspect]
     Indication: ANKYLOSING SPONDYLITIS
     Route: 058
     Dates: start: 20140128, end: 20140303
  2. HUMIRA [Suspect]
     Dates: start: 20140325

REACTIONS (1)
  - Goitre [Recovered/Resolved]
